FAERS Safety Report 13723741 (Version 1)
Quarter: 2017Q3

REPORT INFORMATION
  Report Type: Spontaneous
  Country: US (occurrence: US)
  Receive Date: 20170706
  Receipt Date: 20170706
  Transmission Date: 20171127
  Serious: No
  Sender: FDA-Public Use
  Company Number: US-JNJFOC-20170600221

PATIENT
  Age: 48 Year
  Sex: Female
  Weight: 55.79 kg

DRUGS (2)
  1. SIMPONI [Suspect]
     Active Substance: GOLIMUMAB
     Indication: CROHN^S DISEASE
     Route: 058
     Dates: start: 2015
  2. LO LOESTRIN FE [Concomitant]
     Active Substance: ETHINYL ESTRADIOL\NORETHINDRONE ACETATE
     Indication: CONTRACEPTION
     Dosage: SE 24/ DAILY
     Route: 048
     Dates: start: 2009

REACTIONS (6)
  - Accidental exposure to product [Unknown]
  - Device malfunction [Unknown]
  - Underdose [Unknown]
  - Off label use [Unknown]
  - Injection site haemorrhage [Unknown]
  - Product use in unapproved indication [Unknown]

NARRATIVE: CASE EVENT DATE: 2015
